FAERS Safety Report 4900195-7 (Version None)
Quarter: 2006Q1

REPORT INFORMATION
  Report Type: 
  Country: None (occurrence: None)
  Receive Date: 20060203
  Receipt Date: 20050825
  Transmission Date: 20060701
  Serious: Yes (Hospitalization, Disabling)
  Sender: FDA-Public Use
  Company Number: A01200505866

PATIENT
  Age: 49 Year
  Sex: Male

DRUGS (5)
  1. ARIXTRA [Suspect]
     Dosage: 2.5MG PER DAY
     Route: 058
     Dates: start: 20050720
  2. NEXIUM [Concomitant]
  3. WELLBUTRIN [Concomitant]
  4. ZOFRAN [Concomitant]
  5. NEURONTIN [Concomitant]

REACTIONS (1)
  - HAEMATOMA [None]
